FAERS Safety Report 7537539-6 (Version None)
Quarter: 2011Q2

REPORT INFORMATION
  Report Type: 
  Country: None (occurrence: None)
  Receive Date: 20110609
  Receipt Date: 20070328
  Transmission Date: 20111010
  Serious: Yes (Hospitalization, Disabling, Other)
  Sender: FDA-Public Use
  Company Number: PHMT2007CA00682

PATIENT
  Sex: Male

DRUGS (5)
  1. LIPITOR [Concomitant]
  2. CLOZAPINE [Suspect]
     Dosage: DOSE DECREASED
     Route: 048
     Dates: end: 20070327
  3. METFORMIN HCL [Concomitant]
  4. CLOZAPINE [Suspect]
     Indication: SCHIZOPHRENIA
     Dosage: 450 MG, UNK
     Route: 048
     Dates: start: 19940817
  5. MONOPRIL [Concomitant]

REACTIONS (4)
  - MUSCULAR WEAKNESS [None]
  - WHEELCHAIR USER [None]
  - ABASIA [None]
  - WALKING AID USER [None]
